FAERS Safety Report 11882624 (Version 1)
Quarter: 2015Q4

REPORT INFORMATION
  Report Type: Spontaneous
  Country: US (occurrence: None)
  Receive Date: 20151230
  Receipt Date: 20151230
  Transmission Date: 20160305
  Serious: No
  Sender: FDA-Public Use
  Company Number: None

PATIENT
  Age: 57 Year
  Sex: Female
  Weight: 77.11 kg

DRUGS (4)
  1. AMLODIPINE [Concomitant]
     Active Substance: AMLODIPINE BESYLATE
  2. SALONPAS PAIN RELIEF [Suspect]
     Active Substance: MENTHOL\METHYL SALICYLATE
     Indication: MUSCLE STRAIN
     Dates: start: 20151223, end: 20151224
  3. IRBESPARTAN [Concomitant]
  4. HYDROCHLORIDE [Concomitant]
     Active Substance: UNSPECIFIED INGREDIENT

REACTIONS (4)
  - Application site erythema [None]
  - Application site burn [None]
  - Application site pruritus [None]
  - Application site irritation [None]

NARRATIVE: CASE EVENT DATE: 20151223
